FAERS Safety Report 7333631 (Version 11)
Quarter: 2016Q4

REPORT INFORMATION
  Report Type: Report from Study
  Country: CA (occurrence: CA)
  Receive Date: 20100326
  Receipt Date: 20161007
  Transmission Date: 20170207
  Serious: Yes (Other)
  Sender: FDA-Public Use
  Company Number: PHHY2010CA15332

PATIENT
  Age: 60 Year
  Sex: Male

DRUGS (1)
  1. SANDOSTATIN LAR DEPOT [Suspect]
     Active Substance: OCTREOTIDE ACETATE
     Indication: CARCINOID TUMOUR
     Dosage: 30 MG, QMO (EVERY 4 WEEKS)
     Route: 030
     Dates: start: 20060815, end: 2016

REACTIONS (9)
  - Nasopharyngitis [Unknown]
  - Groin pain [Recovering/Resolving]
  - Abasia [Unknown]
  - Metastases to bone [Unknown]
  - Blood pressure increased [Unknown]
  - Weight decreased [Unknown]
  - Malaise [Unknown]
  - Malignant neoplasm progression [Unknown]
  - Pain [Recovering/Resolving]

NARRATIVE: CASE EVENT DATE: 20100315
